FAERS Safety Report 18406715 (Version 4)
Quarter: 2021Q1

REPORT INFORMATION
  Report Type: Spontaneous
  Country: US (occurrence: US)
  Receive Date: 20201020
  Receipt Date: 20210205
  Transmission Date: 20210419
  Serious: Yes (Hospitalization)
  Sender: FDA-Public Use
  Company Number: US-PFIZER INC-2020403257

PATIENT
  Age: 80 Year
  Sex: Male
  Weight: 81.65 kg

DRUGS (2)
  1. BRAFTOVI [Suspect]
     Active Substance: ENCORAFENIB
     Indication: COLON CANCER
     Dosage: 300 MG (3DF) 2X/DAY (USUALLY AROUND 9 IN THE MORNING 9 IN THE EVENING)
     Dates: start: 20191223
  2. MEKTOVI [Suspect]
     Active Substance: BINIMETINIB
     Indication: COLON CANCER
     Dosage: 45 MG (4DF) 1X/DAY (USUALLY TAKE THREE IN THE AFTERNOON)
     Dates: start: 20191223

REACTIONS (6)
  - Off label use [Unknown]
  - Gastrointestinal stoma complication [Unknown]
  - Hypoaesthesia [Unknown]
  - Rash [Unknown]
  - Product dose omission issue [Unknown]
  - Skin lesion [Unknown]
